FAERS Safety Report 13947851 (Version 2)
Quarter: 2017Q4

REPORT INFORMATION
  Report Type: Spontaneous
  Country: US (occurrence: US)
  Receive Date: 20170908
  Receipt Date: 20171005
  Transmission Date: 20180320
  Serious: No
  Sender: FDA-Public Use
  Company Number: US-TEVA-803018ACC

PATIENT
  Age: 28 Year
  Sex: Female

DRUGS (1)
  1. PARAGARD T 380A [Suspect]
     Active Substance: COPPER
     Indication: CONTRACEPTION
     Dosage: FOR MORE THAN 7 YEARS
     Route: 065

REACTIONS (4)
  - Menorrhagia [Unknown]
  - Dysmenorrhoea [Unknown]
  - Device breakage [Unknown]
  - Complication associated with device [Unknown]

NARRATIVE: CASE EVENT DATE: 201608
